FAERS Safety Report 18335638 (Version 1)
Quarter: 2020Q4

REPORT INFORMATION
  Report Type: Spontaneous
  Country: US (occurrence: US)
  Receive Date: 20201001
  Receipt Date: 20201001
  Transmission Date: 20210113
  Serious: No
  Sender: FDA-Public Use
  Company Number: US-GLAXOSMITHKLINE-US2020188904

PATIENT
  Age: 81 Year
  Sex: Female

DRUGS (2)
  1. CIPROFLOXACIN. [Suspect]
     Active Substance: CIPROFLOXACIN
     Indication: PRODUCT USED FOR UNKNOWN INDICATION
     Dosage: UNK
  2. ADVAIR DISKUS [Suspect]
     Active Substance: FLUTICASONE PROPIONATE\SALMETEROL XINAFOATE
     Indication: ASTHMA
     Dosage: 1 PUFF(S), BID
     Route: 055
     Dates: start: 202002

REACTIONS (8)
  - Toothache [Unknown]
  - Skin disorder [Not Recovered/Not Resolved]
  - Drug hypersensitivity [Unknown]
  - Dyspnoea [Unknown]
  - Lymphadenopathy [Unknown]
  - Ear pain [Unknown]
  - Vascular pain [Not Recovered/Not Resolved]
  - Arterial disorder [Not Recovered/Not Resolved]

NARRATIVE: CASE EVENT DATE: 20200301
